FAERS Safety Report 25362755 (Version 2)
Quarter: 2025Q2

REPORT INFORMATION
  Report Type: Report from Study
  Country: AU (occurrence: AU)
  Receive Date: 20250527
  Receipt Date: 20250604
  Transmission Date: 20250717
  Serious: No
  Sender: KARYOPHARM THERAPEUTICS
  Company Number: AU-ANTENGENE-20250503148

PATIENT

DRUGS (1)
  1. SELINEXOR [Suspect]
     Active Substance: SELINEXOR
     Indication: Primary amyloidosis
     Route: 065

REACTIONS (3)
  - Weight decreased [Unknown]
  - Nausea [Unknown]
  - Product dose omission issue [Unknown]
